FAERS Safety Report 8445519-1 (Version None)
Quarter: 2012Q2

REPORT INFORMATION
  Report Type: 
  Country: None (occurrence: None)
  Receive Date: 20120618
  Receipt Date: 20120614
  Transmission Date: 20120825
  Serious: Yes (Hospitalization, Disabling, Other)
  Sender: FDA-Public Use
  Company Number: US-MERCK-1111USA00987

PATIENT
  Age: 66 Year
  Sex: Female

DRUGS (4)
  1. FOSAMAX [Suspect]
     Route: 048
     Dates: start: 20001001, end: 20080201
  2. ALENDRONATE SODIUM [Suspect]
     Route: 048
     Dates: start: 20090623, end: 20090701
  3. FOSAMAX [Suspect]
     Indication: OSTEOPOROSIS
     Route: 048
     Dates: start: 19980101, end: 20001001
  4. ALENDRONATE SODIUM [Suspect]
     Indication: OSTEOPOROSIS
     Route: 048
     Dates: start: 20080201, end: 20090801

REACTIONS (30)
  - LOW TURNOVER OSTEOPATHY [None]
  - POSTMENOPAUSAL HAEMORRHAGE [None]
  - PELVIC PROLAPSE [None]
  - LUMBAR SPINAL STENOSIS [None]
  - ADNEXA UTERI MASS [None]
  - ADVERSE EVENT [None]
  - HOT FLUSH [None]
  - SCOLIOSIS [None]
  - WEIGHT FLUCTUATION [None]
  - BONE DISORDER [None]
  - TONSILLAR DISORDER [None]
  - BLOOD CHOLESTEROL INCREASED [None]
  - PAIN IN EXTREMITY [None]
  - HYPOTHYROIDISM [None]
  - URETERAL DISORDER [None]
  - GROIN PAIN [None]
  - BONE PAIN [None]
  - BACK PAIN [None]
  - FEMUR FRACTURE [None]
  - ARTHRITIS [None]
  - ATROPHIC VULVOVAGINITIS [None]
  - PARATHYROID DISORDER [None]
  - GLAUCOMA [None]
  - LIMB ASYMMETRY [None]
  - FIBULA FRACTURE [None]
  - BLOOD PRESSURE INCREASED [None]
  - BODY HEIGHT DECREASED [None]
  - SMEAR CERVIX ABNORMAL [None]
  - ARTHRALGIA [None]
  - CATARACT [None]
